FAERS Safety Report 5361716-6 (Version None)
Quarter: 2007Q2

REPORT INFORMATION
  Report Type: 
  Country: None (occurrence: None)
  Receive Date: 20070619
  Receipt Date: 20070608
  Transmission Date: 20071010
  Serious: Yes (Other)
  Sender: FDA-Public Use
  Company Number: CA-NOVOPROD-264365

PATIENT
  Age: 48 Year
  Sex: Female

DRUGS (3)
  1. NOVOLIN GE 30/70 PENFILL [Suspect]
     Dosage: UNK IU, UNK
     Route: 058
  2. NOVOLIN GE TORONTO PENFIL [Suspect]
     Dosage: UNK IU, TID
     Route: 058
  3. NOVOLIN GE NPH [Concomitant]
     Indication: DRUG USE FOR UNKNOWN INDICATION
     Dosage: UNK IU, UNK
     Route: 058

REACTIONS (4)
  - INJECTION SITE SWELLING [None]
  - NASAL DISCOMFORT [None]
  - OEDEMA PERIPHERAL [None]
  - SWELLING FACE [None]
